FAERS Safety Report 15557591 (Version 1)
Quarter: 2018Q4

REPORT INFORMATION
  Report Type: Report from Study
  Country: CA (occurrence: CA)
  Receive Date: 20181027
  Receipt Date: 20181027
  Transmission Date: 20190205
  Serious: Yes (Other)
  Sender: FDA-Public Use
  Company Number: CA-ROCHE-2205390

PATIENT
  Age: 3 Year
  Sex: Female
  Weight: 13.9 kg

DRUGS (1)
  1. NUTROPIN [Suspect]
     Active Substance: SOMATROPIN
     Indication: GROWTH HORMONE DEFICIENCY
     Route: 058
     Dates: start: 20170117, end: 20180921

REACTIONS (1)
  - Sleep apnoea syndrome [Unknown]

NARRATIVE: CASE EVENT DATE: 20180822
